FAERS Safety Report 13428433 (Version 2)
Quarter: 2017Q2

REPORT INFORMATION
  Report Type: Report from Study
  Country: JP (occurrence: JP)
  Receive Date: 20170411
  Receipt Date: 20170412
  Transmission Date: 20170830
  Serious: Yes (Hospitalization)
  Sender: FDA-Public Use
  Company Number: JP-DSJP-DSJ-2017-111045

PATIENT

DRUGS (9)
  1. CELESTANA [Concomitant]
     Dosage: 1 DF, QD
     Route: 048
     Dates: start: 20160311, end: 20161110
  2. EPINASTINE HYDROCHLORIDE. [Concomitant]
     Active Substance: EPINASTINE HYDROCHLORIDE
     Dosage: 20UG/DAY
     Route: 048
  3. AZULFIDINE EN-TABS [Concomitant]
     Active Substance: SULFASALAZINE
     Dosage: 500MG/DAY
     Route: 048
     Dates: end: 20160818
  4. BAYASPIRIN [Suspect]
     Active Substance: ASPIRIN
     Dosage: 100MG/DAY
     Route: 048
     Dates: end: 20160701
  5. EDOXABAN [Suspect]
     Active Substance: EDOXABAN TOSYLATE
     Indication: DEEP VEIN THROMBOSIS
     Dosage: 30 MG, QD
     Route: 048
     Dates: start: 20151222, end: 20160701
  6. BONOTEO [Concomitant]
     Active Substance: MINODRONIC ACID
     Dosage: 50 MG, ONCE EVERY 4 WK
     Route: 048
     Dates: end: 201611
  7. SARPOGRELATE HYDROCHLORIDE [Concomitant]
     Active Substance: SARPOGRELATE HYDROCHLORIDE
     Dosage: 300MG/DAY
     Route: 048
     Dates: start: 20160311, end: 20160505
  8. DORNER [Concomitant]
     Active Substance: BERAPROST SODIUM
     Dosage: 120UG/DAY
     Route: 048
     Dates: end: 20160505
  9. EDIROL [Concomitant]
     Active Substance: ELDECALCITOL
     Dosage: 0.75UG/DAY
     Route: 048

REACTIONS (2)
  - Haemorrhage subcutaneous [Recovering/Resolving]
  - Lung neoplasm malignant [Not Recovered/Not Resolved]

NARRATIVE: CASE EVENT DATE: 20160506
